FAERS Safety Report 10785771 (Version 1)
Quarter: 2015Q1

REPORT INFORMATION
  Report Type: Spontaneous
  Country: TR (occurrence: TR)
  Receive Date: 20150211
  Receipt Date: 20150211
  Transmission Date: 20150721
  Serious: Yes (Hospitalization)
  Sender: FDA-Public Use
  Company Number: TR-BAYER-2015-016046

PATIENT
  Age: 14 Year
  Sex: Female
  Weight: 56 kg

DRUGS (1)
  1. DROSPIRENONE + ETHINYLESTRADIOL 30?G [Suspect]
     Active Substance: DROSPIRENONE\ETHINYL ESTRADIOL
     Indication: POLYCYSTIC OVARIES
     Route: 048

REACTIONS (11)
  - Kounis syndrome [Recovered/Resolved]
  - Eosinophil count increased [Recovered/Resolved]
  - Headache [None]
  - Chest discomfort [Recovered/Resolved]
  - Pruritus [Recovered/Resolved]
  - Decreased appetite [None]
  - Myocardial ischaemia [Recovered/Resolved]
  - Nausea [None]
  - Product use issue [None]
  - Chest pain [Recovered/Resolved]
  - Troponin increased [Recovered/Resolved]
